FAERS Safety Report 5266119-0 (Version None)
Quarter: 2007Q1

REPORT INFORMATION
  Report Type: 
  Country: None (occurrence: None)
  Receive Date: 20070315
  Receipt Date: 20070307
  Transmission Date: 20070707
  Serious: Yes (Other)
  Sender: FDA-Public Use
  Company Number: US-AVENTIS-200710628US

PATIENT
  Sex: Female
  Weight: 54 kg

DRUGS (2)
  1. BENZACLIN                          /01555701/ [Suspect]
     Indication: ACNE
     Dosage: DOSE: 1X DAILY
     Route: 061
     Dates: start: 20061109, end: 20070105
  2. MULTI-VITAMINS [Concomitant]
     Dosage: DOSE: UNK

REACTIONS (6)
  - BLOOD ALKALINE PHOSPHATASE INCREASED [None]
  - BLOOD BILIRUBIN INCREASED [None]
  - DIZZINESS [None]
  - JAUNDICE [None]
  - MUSCLE SPASMS [None]
  - OCULAR ICTERUS [None]
